FAERS Safety Report 13513770 (Version 1)
Quarter: 2017Q2

REPORT INFORMATION
  Report Type: Spontaneous
  Country: US (occurrence: US)
  Receive Date: 20170504
  Receipt Date: 20170504
  Transmission Date: 20170830
  Serious: No
  Sender: FDA-Public Use
  Company Number: US-ARBOR PHARMACEUTICALS, LLC-US-2017ARB000194

PATIENT

DRUGS (1)
  1. ERY-PED [Suspect]
     Active Substance: ERYTHROMYCIN ETHYLSUCCINATE
     Indication: IMPAIRED GASTRIC EMPTYING
     Dosage: 400MG/5 ML; TAKE 3-5MG/KG PER DOSE THREE TIMES A DAY
     Route: 048
     Dates: start: 201612, end: 201701

REACTIONS (8)
  - Off label use [Unknown]
  - Decreased appetite [Unknown]
  - Drug administration error [Unknown]
  - Antigliadin antibody positive [Unknown]
  - Selective eating disorder [Unknown]
  - Malaise [Unknown]
  - Abdominal pain [Unknown]
  - Documented hypersensitivity to administered product [Unknown]
